FAERS Safety Report 5266106-2 (Version None)
Quarter: 2007Q1

REPORT INFORMATION
  Report Type: 
  Country: None (occurrence: None)
  Receive Date: 20070315
  Receipt Date: 20070312
  Transmission Date: 20070707
  Serious: No
  Sender: FDA-Public Use
  Company Number: HQWYE080202JAN07

PATIENT
  Sex: Male
  Weight: 75 kg

DRUGS (2)
  1. PIPERACILLIN AND TAZOBACTAM [Suspect]
     Indication: PNEUMONIA MYCOPLASMAL
     Route: 041
     Dates: start: 20061219, end: 20061225
  2. VOLTAREN [Concomitant]
     Dosage: 25 TO 75 MG/DAY
     Route: 054
     Dates: start: 20061219, end: 20061225

REACTIONS (2)
  - ALANINE AMINOTRANSFERASE INCREASED [None]
  - ASPARTATE AMINOTRANSFERASE INCREASED [None]
